FAERS Safety Report 6984572-9 (Version None)
Quarter: 2010Q3

REPORT INFORMATION
  Report Type: 
  Country: None (occurrence: None)
  Receive Date: 20100915
  Receipt Date: 20100902
  Transmission Date: 20110219
  Serious: Yes (Other)
  Sender: FDA-Public Use
  Company Number: AU-PFIZER INC-2010111262

PATIENT
  Age: 56 Year
  Sex: Female

DRUGS (5)
  1. CHAMPIX [Suspect]
     Indication: SMOKING CESSATION THERAPY
     Dosage: UNK
     Dates: start: 20100501
  2. ALEPAM [Concomitant]
     Indication: MUSCLE RELAXANT THERAPY
     Dosage: HALF A TABLET
  3. PARIET [Concomitant]
  4. MILK THISTLE [Concomitant]
  5. VITAMINS [Concomitant]

REACTIONS (6)
  - ABNORMAL DREAMS [None]
  - ARTHRALGIA [None]
  - DYSKINESIA [None]
  - MENTAL DISORDER [None]
  - PAIN IN EXTREMITY [None]
  - RESTLESSNESS [None]
